FAERS Safety Report 22635232 (Version 1)
Quarter: 2023Q2

REPORT INFORMATION
  Report Type: Spontaneous
  Country: US (occurrence: US)
  Receive Date: 20230623
  Receipt Date: 20230623
  Transmission Date: 20230722
  Serious: Yes (Other)
  Sender: FDA-Public Use
  Company Number: US-PFIZER INC-202300227762

PATIENT
  Age: 53 Year
  Sex: Female

DRUGS (3)
  1. IBRANCE [Suspect]
     Active Substance: PALBOCICLIB
     Dosage: 125 MG
  2. IBRANCE [Suspect]
     Active Substance: PALBOCICLIB
     Dosage: 75 MG, CYCLIC (ONE WEEK ON OF THE IBRANCE, THEN ONE WEEK OFF)
  3. FULVESTRANT [Concomitant]
     Active Substance: FULVESTRANT
     Dosage: 500 MG, MONTHLY (2 OF THE 250MG ONCE A MONTH)

REACTIONS (7)
  - Gastric ulcer perforation [Unknown]
  - Neutropenia [Unknown]
  - Hypothyroidism [Unknown]
  - Pain [Unknown]
  - Gastrointestinal hypomotility [Unknown]
  - Stomatitis [Unknown]
  - Off label use [Unknown]
